FAERS Safety Report 5479535-9 (Version None)
Quarter: 2007Q4

REPORT INFORMATION
  Report Type: 
  Country: None (occurrence: None)
  Receive Date: 20071008
  Receipt Date: 20070928
  Transmission Date: 20080405
  Serious: Yes (Hospitalization, Other)
  Sender: FDA-Public Use
  Company Number: US-ABBOTT-07P-163-0374432-00

PATIENT
  Sex: Female
  Weight: 122 kg

DRUGS (11)
  1. HUMIRA [Suspect]
     Indication: RHEUMATOID ARTHRITIS
     Route: 058
     Dates: start: 20050901, end: 20070610
  2. HUMIRA [Suspect]
     Dates: start: 20050901, end: 20051101
  3. PANTOPRAZOLE SODIUM [Concomitant]
     Indication: GASTROOESOPHAGEAL REFLUX DISEASE
     Route: 048
  4. LEVOTHYROXINE SODIUM [Concomitant]
     Indication: HYPOTHYROIDISM
     Route: 048
  5. METHOTREXATE SODIUM [Concomitant]
     Indication: RHEUMATOID ARTHRITIS
     Route: 048
     Dates: start: 20040129
  6. METHOTREXATE SODIUM [Concomitant]
  7. METHOTREXATE SODIUM [Concomitant]
     Dates: end: 20070610
  8. METHOTREXATE SODIUM [Concomitant]
  9. HYDROCHLOROTHIAZIDE [Concomitant]
     Indication: DRUG USE FOR UNKNOWN INDICATION
  10. HYDROCHLOROTHIAZIDE [Concomitant]
  11. PREDNISONE [Concomitant]
     Indication: DRUG USE FOR UNKNOWN INDICATION
     Route: 048

REACTIONS (19)
  - ABDOMINAL MASS [None]
  - ABDOMINAL PAIN [None]
  - ALOPECIA [None]
  - ANOREXIA [None]
  - BACK PAIN [None]
  - CONSTIPATION [None]
  - CONTUSION [None]
  - DECREASED APPETITE [None]
  - DIARRHOEA [None]
  - DIFFUSE LARGE B-CELL LYMPHOMA STAGE IV [None]
  - FATIGUE [None]
  - HEADACHE [None]
  - LYMPHOMA [None]
  - MALAISE [None]
  - NAUSEA [None]
  - NOCTURIA [None]
  - PARATHYROID TUMOUR BENIGN [None]
  - PYREXIA [None]
  - URINARY TRACT INFECTION [None]
